FAERS Safety Report 10466087 (Version 1)
Quarter: 2014Q3

REPORT INFORMATION
  Report Type: Spontaneous
  Country: US (occurrence: None)
  Receive Date: 20140919
  Receipt Date: 20140919
  Transmission Date: 20150326
  Serious: Yes (Other)
  Sender: FDA-Public Use
  Company Number: None

PATIENT
  Age: 56 Year
  Sex: Male
  Weight: 93.4 kg

DRUGS (5)
  1. PREDNISONE. [Concomitant]
     Active Substance: PREDNISONE
  2. ASKP1240 [Concomitant]
     Active Substance: INVESTIGATIONAL PRODUCT
  3. TACROLIMUS. [Concomitant]
     Active Substance: TACROLIMUS
  4. VALCYTE [Concomitant]
     Active Substance: VALGANCICLOVIR HYDROCHLORIDE
  5. FLEBOGAMMA DIF [Suspect]
     Active Substance: HUMAN IMMUNOGLOBULIN G
     Indication: IMMUNOGLOBULINS DECREASED
     Route: 042
     Dates: start: 20140327, end: 20140327

REACTIONS (3)
  - Chills [None]
  - Tremor [None]
  - Pyrexia [None]

NARRATIVE: CASE EVENT DATE: 20140327
